FAERS Safety Report 8485254-7 (Version None)
Quarter: 2012Q3

REPORT INFORMATION
  Report Type: 
  Country: None (occurrence: None)
  Receive Date: 20120703
  Receipt Date: 20120515
  Transmission Date: 20120928
  Serious: Yes (Death)
  Sender: FDA-Public Use
  Company Number: NO-JNJFOC-20120513440

PATIENT
  Age: 79 Year

DRUGS (1)
  1. INFLIXIMAB, RECOMBINANT [Suspect]
     Indication: CROHN'S DISEASE
     Dosage: AT WEEK 0, 2 AND 6.  TIME SINCE LAST DOSE WAS 31 MONTHS.
     Route: 042

REACTIONS (3)
  - APLASTIC ANAEMIA [None]
  - OPPORTUNISTIC INFECTION [None]
  - AGRANULOCYTOSIS [None]
